FAERS Safety Report 9911520 (Version 1)
Quarter: 2014Q1

REPORT INFORMATION
  Report Type: Spontaneous
  Country: FR (occurrence: FR)
  Receive Date: 20140219
  Receipt Date: 20140219
  Transmission Date: 20141002
  Serious: Yes (Other)
  Sender: FDA-Public Use
  Company Number: PHHY2014FR019591

PATIENT
  Age: 83 Year
  Sex: Female
  Weight: 45 kg

DRUGS (4)
  1. EXELON [Suspect]
     Dosage: 4.5 MG, QD, ONCE
     Route: 048
     Dates: start: 20140110
  2. TRIATEC [Suspect]
     Dosage: 2.5 MG, QD, ONCE
     Route: 048
     Dates: start: 20140110
  3. EBIXA [Suspect]
     Dosage: 20 MG, QD, ONCE
     Route: 048
     Dates: start: 20140110
  4. PROTELOS [Concomitant]
     Indication: OSTEOPOROSIS
     Dosage: UNK UKN, UNK

REACTIONS (5)
  - Vomiting [Recovered/Resolved]
  - Diarrhoea [Recovered/Resolved]
  - Asthenia [Recovered/Resolved]
  - Medication error [Recovered/Resolved]
  - Wrong drug administered [Recovered/Resolved]
